FAERS Safety Report 5625753-6 (Version None)
Quarter: 2008Q1

REPORT INFORMATION
  Report Type: 
  Country: None (occurrence: None)
  Receive Date: 20080207
  Receipt Date: 20080207
  Transmission Date: 20080703
  Serious: No
  Sender: FDA-Public Use
  Company Number: None

PATIENT
  Age: 28 Year
  Sex: Male
  Weight: 83.9154 kg

DRUGS (3)
  1. ZICAM NASAL GEL SPRAY [Suspect]
     Indication: NASAL CONGESTION
     Dosage: 1 PUFF PER NARE
     Dates: start: 20080202, end: 20080202
  2. ZICAM NASAL GEL SPRAY [Suspect]
     Indication: NASOPHARYNGITIS
     Dosage: 1 PUFF PER NARE
     Dates: start: 20080202, end: 20080202
  3. ZICAM NASAL GEL SPRAY [Suspect]
     Indication: PROPHYLAXIS
     Dosage: 1 PUFF PER NARE
     Dates: start: 20080202, end: 20080202

REACTIONS (3)
  - ANOSMIA [None]
  - NASAL DISCOMFORT [None]
  - SINUS HEADACHE [None]
